FAERS Safety Report 8090359-9 (Version None)
Quarter: 2012Q1

REPORT INFORMATION
  Report Type: 
  Country: None (occurrence: None)
  Receive Date: 20120129
  Receipt Date: 20111130
  Transmission Date: 20120608
  Serious: No
  Sender: FDA-Public Use
  Company Number: US-ABBOTT-11P-163-0879537-00

PATIENT
  Age: 70 Year
  Sex: Female

DRUGS (13)
  1. ALLEGRA [Concomitant]
     Indication: HYPERSENSITIVITY
     Dosage: DAILY
  2. RELAFEN [Concomitant]
     Indication: RHEUMATOID ARTHRITIS
  3. CYTOTEC [Concomitant]
     Indication: PROPHYLAXIS AGAINST GASTROINTESTINAL ULCER
  4. HYZAAR [Concomitant]
     Indication: HYPERTENSION
     Dosage: 100/25MG DAILY
  5. B12-VITAMIIN [Concomitant]
     Indication: PRODUCT USED FOR UNKNOWN INDICATION
     Dosage: DAILY
  6. FOLIC ACID [Concomitant]
     Indication: PRODUCT USED FOR UNKNOWN INDICATION
  7. METHOTREXATE [Concomitant]
     Indication: RHEUMATOID ARTHRITIS
     Dosage: 25 MG WEEKL
  8. LIPITOR [Concomitant]
     Indication: BLOOD CHOLESTEROL INCREASED
  9. NORVASC [Concomitant]
     Indication: HYPERTENSION
  10. SYNTHROID [Concomitant]
     Indication: HYPOTHYROIDISM
  11. HUMIRA [Suspect]
     Indication: RHEUMATOID ARTHRITIS
     Dosage: PAUSED TXMNT D/T AE
     Route: 058
     Dates: start: 20110801, end: 20110903
  12. DOXEPIN [Concomitant]
     Indication: FIBROMYALGIA
  13. ASPIRIN [Concomitant]
     Indication: ANTICOAGULANT THERAPY

REACTIONS (2)
  - FUNGAL SKIN INFECTION [None]
  - PRURITUS [None]
